FAERS Safety Report 16458913 (Version 1)
Quarter: 2019Q2

REPORT INFORMATION
  Report Type: Spontaneous
  Country: US (occurrence: US)
  Receive Date: 20190620
  Receipt Date: 20190620
  Transmission Date: 20190711
  Serious: No
  Sender: FDA-Public Use
  Company Number: US-THERAPEUTICSMD-2019TMD00986

PATIENT
  Age: 63 Year
  Sex: Male

DRUGS (1)
  1. IMVEXXY [Suspect]
     Active Substance: ESTRADIOL
     Dosage: UNK, ONCE
     Dates: start: 20190512, end: 20190512

REACTIONS (2)
  - Exposure via partner [Recovered/Resolved]
  - Discharge [Unknown]

NARRATIVE: CASE EVENT DATE: 20190512
